FAERS Safety Report 13290995 (Version 1)
Quarter: 2017Q1

REPORT INFORMATION
  Report Type: Spontaneous
  Country: US (occurrence: US)
  Receive Date: 20170302
  Receipt Date: 20170302
  Transmission Date: 20170428
  Serious: No
  Sender: FDA-Public Use
  Company Number: US-009507513-1702USA006727

PATIENT
  Sex: Male

DRUGS (1)
  1. PROPECIA [Suspect]
     Active Substance: FINASTERIDE
     Indication: CLINICAL TRIAL PARTICIPANT
     Dosage: UNK
     Route: 048
     Dates: start: 1998

REACTIONS (1)
  - Sexual dysfunction [Unknown]
